FAERS Safety Report 4663062-2 (Version None)
Quarter: 2005Q2

REPORT INFORMATION
  Report Type: 
  Country: None (occurrence: None)
  Receive Date: 20050506
  Receipt Date: 20050502
  Transmission Date: 20051028
  Serious: Yes (Other)
  Sender: FDA-Public Use
  Company Number: 1480

PATIENT
  Age: 22 Year
  Sex: Female

DRUGS (2)
  1. SOTRET [Suspect]
     Dates: start: 20040521
  2. AMNESTEEM [Suspect]
     Dates: end: 20040620

REACTIONS (1)
  - DRUG EXPOSURE DURING PREGNANCY [None]
